FAERS Safety Report 8366983-2 (Version None)
Quarter: 2012Q2

REPORT INFORMATION
  Report Type: 
  Country: None (occurrence: None)
  Receive Date: 20120517
  Receipt Date: 20120502
  Transmission Date: 20120825
  Serious: Yes (Hospitalization)
  Sender: FDA-Public Use
  Company Number: US-ROCHE-1053576

PATIENT
  Sex: Female

DRUGS (20)
  1. OMALIZUMAB [Suspect]
     Dosage: FIRST TRIMESTER
     Route: 058
     Dates: start: 20110910
  2. ZYRTEC [Concomitant]
     Indication: HYPERSENSITIVITY
  3. SINGULAIR [Concomitant]
     Indication: ASTHMA
  4. XOPENEX [Concomitant]
     Dosage: DRUG NAME: XOPENEX NEBULIZER
  5. TYLENOL (CAPLET) [Concomitant]
     Indication: HEADACHE
  6. VICODIN [Concomitant]
     Indication: MUSCLE STRAIN
  7. OMALIZUMAB [Suspect]
     Indication: ASTHMA
     Dosage: MOST RECENT DOSE:03/MAR/2012
     Route: 058
     Dates: start: 20100128
  8. OMALIZUMAB [Suspect]
     Dosage: FIRST TRIMESTER
     Route: 058
     Dates: start: 20111117
  9. OMALIZUMAB [Suspect]
     Dosage: SECOND TRIMESTER
     Route: 058
     Dates: start: 20120303
  10. IMMUNOTHERAPY UNKNOWN ALLERGEN INJECTION [Concomitant]
     Indication: HYPERSENSITIVITY
     Dosage: DRUG NAME: IMMUNOTHERAPY
  11. OMALIZUMAB [Suspect]
     Dosage: SECOND TRIMESTER
     Route: 058
     Dates: start: 20120130
  12. ANCEF [Concomitant]
     Indication: STREPTOCOCCAL INFECTION
     Dosage: INDICATION: POSITIVE GROUP B STREP
     Route: 042
     Dates: start: 20120424, end: 20120424
  13. VITAMIN AND MINERAL PRENATAL SUPPLEMENT W/ FOLIC ACID CAP [Concomitant]
     Indication: PREGNANCY
  14. PREDNISONE [Concomitant]
     Indication: ASTHMA
  15. SOLU-MEDROL [Concomitant]
     Indication: ASTHMA
     Route: 042
     Dates: start: 20120424, end: 20120424
  16. HYDROCHLOROTHIAZIDE [Concomitant]
     Indication: BLOOD PRESSURE INCREASED
     Route: 048
     Dates: start: 20120427
  17. OMALIZUMAB [Suspect]
     Dosage: 8 WEEKS PRIOR TO CONCEPTION
     Route: 058
     Dates: start: 20110813
  18. OMALIZUMAB [Suspect]
     Dosage: SECOND TRIMESTER
     Route: 058
     Dates: start: 20111222
  19. XOPENEX [Concomitant]
     Indication: ASTHMA
     Dosage: DRUG NAME: XOPENEX INHALER
  20. SYMBICORT [Concomitant]
     Indication: ASTHMA

REACTIONS (2)
  - PREGNANCY [None]
  - GESTATIONAL HYPERTENSION [None]
